FAERS Safety Report 25634818 (Version 1)
Quarter: 2025Q3

REPORT INFORMATION
  Report Type: Spontaneous
  Country: US (occurrence: US)
  Receive Date: 20250801
  Receipt Date: 20250801
  Transmission Date: 20251021
  Serious: No
  Sender: CSL BEHRING
  Company Number: US-BEH-2025214008

PATIENT

DRUGS (1)
  1. HIZENTRA [Suspect]
     Active Substance: HUMAN IMMUNOGLOBULIN G
     Dosage: 7 G, QW
     Route: 058

REACTIONS (3)
  - Blood immunoglobulin G abnormal [Unknown]
  - Headache [Unknown]
  - Vomiting [Unknown]
